FAERS Safety Report 7829320-5 (Version None)
Quarter: 2011Q4

REPORT INFORMATION
  Report Type: 
  Country: None (occurrence: None)
  Receive Date: 20111020
  Receipt Date: 20111011
  Transmission Date: 20120403
  Serious: Yes (Hospitalization, Other)
  Sender: FDA-Public Use
  Company Number: MX-SANOFI-AVENTIS-2011SA066785

PATIENT
  Age: 63 Year
  Sex: Female
  Weight: 79 kg

DRUGS (4)
  1. INSULIN GLARGINE [Suspect]
     Dosage: 50 IU IN THE MORNING AND 22 IU AT NIGHT
     Route: 058
     Dates: start: 20100101, end: 20110801
  2. INSULIN GLARGINE [Suspect]
     Dosage: 50 IU IN THE MORNING AND 22 IU AT NIGHT
     Route: 058
     Dates: start: 20111009
  3. INSULIN GLARGINE [Suspect]
     Indication: TYPE 2 DIABETES MELLITUS
     Dates: start: 20060101, end: 20100101
  4. MICARDIS [Concomitant]
     Dates: start: 20060101

REACTIONS (5)
  - RENAL FAILURE [None]
  - VISUAL IMPAIRMENT [None]
  - PROTEINURIA [None]
  - HYDROCHOLECYSTIS [None]
  - HYPERGLYCAEMIA [None]
